FAERS Safety Report 4595273-9 (Version None)
Quarter: 2005Q1

REPORT INFORMATION
  Report Type: 
  Country: None (occurrence: None)
  Receive Date: 20050225
  Receipt Date: 20050211
  Transmission Date: 20050727
  Serious: Yes (Death, Life-Threatening, Hospitalization)
  Sender: FDA-Public Use
  Company Number: 2004-0007885

PATIENT
  Age: 39 Year
  Sex: Male
  Weight: 53.5244 kg

DRUGS (9)
  1. VIREAD [Suspect]
     Indication: ACQUIRED IMMUNODEFICIENCY SYNDROME
     Dosage: 300 M G, ORAL
     Route: 048
     Dates: start: 20020319, end: 20040922
  2. VISTIDE [Suspect]
     Indication: ADENOVIRUS INFECTION
  3. LAMIVUDINE [Concomitant]
  4. KALETRA [Concomitant]
  5. IMODIUM [Concomitant]
  6. BACTRIM [Concomitant]
  7. DIFLUCAN [Concomitant]
  8. REGLAN [Concomitant]
  9. KENALOG [Concomitant]

REACTIONS (9)
  - AZOTAEMIA [None]
  - BLOOD BICARBONATE DECREASED [None]
  - BLOOD CALCIUM DECREASED [None]
  - BLOOD MAGNESIUM DECREASED [None]
  - DISEASE PROGRESSION [None]
  - FLUID INTAKE REDUCED [None]
  - HYPOKALAEMIA [None]
  - HYPOPHOSPHATAEMIA [None]
  - RENAL TUBULAR ACIDOSIS [None]
